FAERS Safety Report 9393860 (Version 7)
Quarter: 2013Q3

REPORT INFORMATION
  Report Type: Spontaneous
  Country: JP (occurrence: None)
  Receive Date: 20130705
  Receipt Date: 20130925
  Transmission Date: 20140515
  Serious: Yes (Hospitalization)
  Sender: FDA-Public Use
  Company Number: SYM-2013-05317

PATIENT
  Age: 66 Year
  Sex: Male

DRUGS (12)
  1. 5 FU [Suspect]
     Indication: COLORECTAL CANCER METASTATIC
     Route: 040
     Dates: start: 20130426, end: 20130426
  2. BLINDED THERAPY [Suspect]
     Indication: COLORECTAL CANCER METASTATIC
     Dosage: 190 MG, EVERY OTHER WEEK, INTRAVENOUS (NOT OTHERWISE SPECIFIED)
     Route: 042
     Dates: start: 20130426, end: 20130426
  3. IRINOTECAN [Suspect]
     Indication: COLORECTAL CANCER METASTATIC
     Dosage: 266 MG, EVERY OTHER WEEK, INTRAVENOUS (NOT OTHERWISE SPECIFIED)
     Route: 042
     Dates: start: 20130426, end: 20130426
  4. LEUCOVORIN [Suspect]
     Indication: COLORECTAL CANCER METASTATIC
     Dosage: 296 MG, EVERY OTHER WEEK, INTRAVENOUS (NOT OTHERWISE SPECIFIED)?
     Route: 042
     Dates: start: 20130426, end: 20130426
  5. LOXOPROFEN (LOXOPROFEN) (LOXOPROFEN) [Concomitant]
  6. MYSLEE (ZOLPIDEM TARTRATE) (ZOLPIDEM TARTRATE) [Concomitant]
  7. AZULENE SODIUM SULFONATE (AZULENE SODIUM SOLFONATE) (AZULENE SODIUM SULFONATE) [Concomitant]
  8. RINDERON (BETAMETHASONE) (BETAMETHASONE) [Concomitant]
  9. BERIZYM (ENZYMES NOS) (ENZYMES NOS) [Concomitant]
  10. GASMOTIN (MOSAPRIDE CITRATE) (MOSAPRIDE CITRATE) [Concomitant]
  11. LOPERAMIDE HYDROCHLORIDE (LOPERAMIDE HYDROCHLORIDE) (LOPERAMIDE HYDROCHLORIDE) [Concomitant]
  12. ELENTAL (MINERALS NOS W/VITAMINS NOS) (VITAMINS NOS, MINERALS NOS) [Concomitant]

REACTIONS (10)
  - Decreased appetite [None]
  - Stomatitis [None]
  - General physical health deterioration [None]
  - Stomatitis [None]
  - Heart rate decreased [None]
  - Hepatic failure [None]
  - Malignant neoplasm progression [None]
  - Colorectal cancer metastatic [None]
  - Hyperhidrosis [None]
  - Infusion related reaction [None]
